FAERS Safety Report 19375652 (Version 2)
Quarter: 2021Q3

REPORT INFORMATION
  Report Type: Report from Study
  Country: DE (occurrence: DE)
  Receive Date: 20210605
  Receipt Date: 20210806
  Transmission Date: 20211014
  Serious: Yes (Other)
  Sender: FDA-Public Use
  Company Number: DE-CELLTRION INC.-2021DE007488

PATIENT

DRUGS (8)
  1. TRUXIMA [Suspect]
     Active Substance: RITUXIMAB-ABBS
     Indication: PRODUCT USED FOR UNKNOWN INDICATION
     Dosage: 675 MG ON DAY 1 ON EACH CYCLE
     Route: 042
     Dates: start: 20200121, end: 20210708
  2. METOCLOPRAMIDE. [Concomitant]
     Active Substance: METOCLOPRAMIDE
     Dosage: AS NEEDED
  3. L?THYROXINE [LEVOTHYROXINE] [Concomitant]
     Active Substance: LEVOTHYROXINE
  4. SORMODREN [Concomitant]
     Active Substance: BORNAPRINE HYDROCHLORIDE
  5. PANTOZOLE [Concomitant]
     Active Substance: PANTOPRAZOLE SODIUM
  6. ALLOPURINOL. [Concomitant]
     Active Substance: ALLOPURINOL
  7. ALENDRONIC ACID [Concomitant]
     Active Substance: ALENDRONIC ACID
  8. DEKRISTOL [Concomitant]
     Active Substance: CHOLECALCIFEROL

REACTIONS (4)
  - Platelet count decreased [Recovered/Resolved]
  - Chills [Recovered/Resolved]
  - Cataract [Unknown]
  - Visual impairment [Unknown]

NARRATIVE: CASE EVENT DATE: 20200127
